FAERS Safety Report 22147281 (Version 1)
Quarter: 2023Q1

REPORT INFORMATION
  Report Type: Spontaneous
  Country: AU (occurrence: AU)
  Receive Date: 20230328
  Receipt Date: 20230328
  Transmission Date: 20230417
  Serious: Yes (Hospitalization, Disabling)
  Sender: FDA-Public Use
  Company Number: None

PATIENT
  Age: 56 Year
  Sex: Male

DRUGS (1)
  1. DEXAMETHASONE [Suspect]
     Active Substance: DEXAMETHASONE
     Indication: COVID-19
     Dosage: UNK, HIGH DOSE
     Route: 065

REACTIONS (9)
  - Disseminated mucormycosis [Recovered/Resolved]
  - Rhinocerebral mucormycosis [Recovered/Resolved with Sequelae]
  - Renal abscess [Recovered/Resolved]
  - Hydronephrosis [Recovered/Resolved]
  - Ureteric obstruction [Recovered/Resolved]
  - Acute kidney injury [Recovered/Resolved]
  - Mucormycosis [Recovered/Resolved]
  - Renal disorder [Recovered/Resolved]
  - Off label use [Recovered/Resolved]
